FAERS Safety Report 9121941 (Version 2)
Quarter: 2013Q1

REPORT INFORMATION
  Report Type: Spontaneous
  Country: FR (occurrence: FR)
  Receive Date: 20130114
  Receipt Date: 20130306
  Transmission Date: 20140127
  Serious: Yes (Hospitalization)
  Sender: FDA-Public Use
  Company Number: FR-009507513-1301FRA002854

PATIENT
  Age: 82 Year
  Sex: Male

DRUGS (8)
  1. COZAAR [Suspect]
     Dosage: 100 MG, QD
     Route: 048
     Dates: end: 20120824
  2. LASILIX [Suspect]
     Dosage: 20 MG, QD
     Route: 048
     Dates: end: 20120824
  3. RYTHMODAN [Suspect]
     Indication: ARRHYTHMIA SUPRAVENTRICULAR
     Dosage: 250 MG, BID
     Route: 048
     Dates: end: 20120824
  4. NEBILOX [Suspect]
     Dosage: 1.25 MG, QD
     Route: 048
     Dates: end: 20120824
  5. SINTROM [Concomitant]
     Dosage: UNK
     Route: 048
     Dates: end: 20120923
  6. BEFIZAL [Concomitant]
     Dosage: 400 MG, UNK
     Route: 048
  7. ZYLORIC [Concomitant]
     Dosage: 1 DF, QD
     Route: 048
  8. TADENAN [Concomitant]
     Dosage: 50 MG, BID
     Route: 048

REACTIONS (3)
  - Syncope [Recovered/Resolved]
  - Renal failure [Recovered/Resolved]
  - Hypotension [Recovered/Resolved]
